FAERS Safety Report 24743313 (Version 1)
Quarter: 2024Q4

REPORT INFORMATION
  Report Type: Spontaneous
  Country: NL (occurrence: NL)
  Receive Date: 20241217
  Receipt Date: 20241217
  Transmission Date: 20250115
  Serious: Yes (Hospitalization)
  Sender: ACCORD
  Company Number: None

PATIENT
  Age: 79 Year
  Sex: Male
  Weight: 92 kg

DRUGS (3)
  1. CAPECITABINE [Suspect]
     Active Substance: CAPECITABINE
     Indication: Rectal cancer metastatic
     Dosage: 2 X PER DAY 5 PIECES OF 500MG
     Dates: start: 20240614
  2. AVASTIN [Suspect]
     Active Substance: BEVACIZUMAB
     Indication: Rectal cancer metastatic
     Dosage: 25 MG/ML VIAL 4 ML, 7.5 MG/KG, TOTAL 687.50 MG
     Dates: start: 20240614
  3. HALOPERIDOL [Concomitant]
     Active Substance: HALOPERIDOL
     Dosage: STRENGTH: 1 MG, 2 TIMES A DAY 1 PIECE

REACTIONS (1)
  - Delirium [Recovering/Resolving]
